FAERS Safety Report 18746692 (Version 1)
Quarter: 2021Q1

REPORT INFORMATION
  Report Type: Report from Study
  Country: DE (occurrence: DE)
  Receive Date: 20210115
  Receipt Date: 20210115
  Transmission Date: 20210419
  Serious: Yes (Hospitalization)
  Sender: FDA-Public Use
  Company Number: DE-PFIZER INC-2020276950

PATIENT
  Age: 74 Year
  Sex: Male
  Weight: 62 kg

DRUGS (5)
  1. GLASDEGIB [Suspect]
     Active Substance: GLASDEGIB
     Indication: MYELODYSPLASTIC SYNDROME
     Dosage: 100 MG, ONCE DAILY
     Route: 048
     Dates: start: 20181115
  2. GLASDEGIB [Suspect]
     Active Substance: GLASDEGIB
     Dosage: 75 MG, ONCE DAILY
     Route: 048
     Dates: end: 20200715
  3. ASPIRIN. [Concomitant]
     Active Substance: ASPIRIN
     Indication: PROPHYLAXIS
     Dosage: 100 MG, 1X/DAY IN THE MORNING (1?0?0)
     Route: 048
     Dates: start: 20180917
  4. SIMVASTIN [Concomitant]
     Active Substance: SIMVASTATIN
     Indication: PROPHYLAXIS
     Dosage: 20 MG, 1X/DAY IN THE EVENING (0?0?1)
     Route: 048
     Dates: start: 20180917
  5. VIDAZA [Suspect]
     Active Substance: AZACITIDINE
     Indication: MYELODYSPLASTIC SYNDROME
     Dosage: 129.76 MG, CYCLIC (FOR 7 DAYS EVERY 28 DAYS)
     Route: 058
     Dates: start: 20181115, end: 20200708

REACTIONS (1)
  - Pneumonia fungal [Recovered/Resolved with Sequelae]

NARRATIVE: CASE EVENT DATE: 20200716
